FAERS Safety Report 8840516 (Version 2)
Quarter: 2012Q4

REPORT INFORMATION
  Report Type: 
  Country: US (occurrence: US)
  Receive Date: 20121015
  Receipt Date: 20121116
  Transmission Date: 20130627
  Serious: Yes (Hospitalization)
  Sender: FDA-Public Use
  Company Number: US-ROCHE-1141757

PATIENT
  Sex: Female

DRUGS (2)
  1. NUTROPIN AQ [Suspect]
     Indication: HYPOPITUITARISM
     Route: 065
     Dates: start: 199604
  2. NUTROPIN AQ [Suspect]
     Route: 058

REACTIONS (4)
  - Headache [Recovered/Resolved]
  - Pyrexia [Unknown]
  - Convulsion [Unknown]
  - Hypoglycaemia [Unknown]
